FAERS Safety Report 4756708-1 (Version None)
Quarter: 2005Q3

REPORT INFORMATION
  Report Type: 
  Country: None (occurrence: None)
  Receive Date: 20050830
  Receipt Date: 20050822
  Transmission Date: 20060218
  Serious: Yes (Death, Hospitalization, Other)
  Sender: FDA-Public Use
  Company Number: FR-BRISTOL-MYERS SQUIBB COMPANY-13087093

PATIENT
  Age: 63 Year
  Sex: Female

DRUGS (1)
  1. HYDREA [Suspect]
     Indication: ACUTE MYELOID LEUKAEMIA

REACTIONS (5)
  - CONFUSIONAL STATE [None]
  - DEATH [None]
  - HYPERCALCAEMIA [None]
  - HYPERKALAEMIA [None]
  - TUMOUR LYSIS SYNDROME [None]
